FAERS Safety Report 6029119-9 (Version None)
Quarter: 2008Q4

REPORT INFORMATION
  Report Type: 
  Country: None (occurrence: None)
  Receive Date: 20081230
  Receipt Date: 20081215
  Transmission Date: 20090506
  Serious: Yes (Hospitalization)
  Sender: FDA-Public Use
  Company Number: 2008-186011-NL

PATIENT
  Age: 19 Year
  Sex: Female

DRUGS (7)
  1. ROCURONIUM BROMIDE [Suspect]
     Indication: ANAESTHESIA PROCEDURE
     Dosage: INTRAVENOUS (NOS)
     Route: 042
     Dates: start: 20071227, end: 20071227
  2. MIDAZOLAM HYDROCHLORIDE [Concomitant]
  3. FENTANYL-100 [Concomitant]
  4. SUCRALFATE [Concomitant]
  5. NYSTATIN [Concomitant]
  6. NOREPINEPHRINE [Concomitant]
  7. GINKGO BILOBA EXTRACT [Concomitant]

REACTIONS (3)
  - ANAPHYLACTOID REACTION [None]
  - BRONCHOSPASM [None]
  - FACE OEDEMA [None]
